FAERS Safety Report 6604261-X (Version None)
Quarter: 2010Q1

REPORT INFORMATION
  Report Type: 
  Country: None (occurrence: None)
  Receive Date: 20100226
  Receipt Date: 20090821
  Transmission Date: 20100710
  Serious: No
  Sender: FDA-Public Use
  Company Number: A0798835A

PATIENT
  Age: 22 Year
  Sex: Male
  Weight: 89.5 kg

DRUGS (7)
  1. LAMICTAL CD [Suspect]
     Indication: BIPOLAR DISORDER
     Dosage: 50MG TWICE PER DAY
     Route: 048
     Dates: start: 20090206, end: 20090427
  2. AMBIEN [Concomitant]
     Route: 048
     Dates: start: 20090615, end: 20090720
  3. GEODON [Concomitant]
     Dates: start: 20090330
  4. COGENTIN [Concomitant]
     Dosage: 2MG THREE TIMES PER DAY
     Route: 048
     Dates: start: 20090615
  5. TRAZODONE HCL [Concomitant]
     Dosage: 100MG AT NIGHT
     Route: 048
     Dates: start: 20081201
  6. SEROQUEL [Concomitant]
     Dosage: 50MG PER DAY
     Route: 048
     Dates: start: 20090301, end: 20090427
  7. DEPAKOTE ER [Concomitant]
     Route: 048
     Dates: start: 20090330, end: 20090627

REACTIONS (1)
  - VISION BLURRED [None]
